FAERS Safety Report 17969399 (Version 1)
Quarter: 2020Q3

REPORT INFORMATION
  Report Type: Spontaneous
  Country: ES (occurrence: ES)
  Receive Date: 20200701
  Receipt Date: 20200701
  Transmission Date: 20201103
  Serious: Yes (Death, Hospitalization)
  Sender: FDA-Public Use
  Company Number: ES-MYLANLABS-2020M1059232

PATIENT
  Age: 60 Year
  Sex: Male
  Weight: 67 kg

DRUGS (2)
  1. NERVINEX [Interacting]
     Active Substance: BRIVUDINE
     Indication: HERPES ZOSTER
     Dosage: 125 MILLIGRAM, QD, DOSIS UNIDAD FRECUENCIA: 125 MG?MILIGRAMOS || DOSIS POR TOMA: 125 MG
     Route: 048
     Dates: start: 20140804, end: 20140811
  2. CAPECITABINE. [Suspect]
     Active Substance: CAPECITABINE
     Indication: ADENOCARCINOMA GASTRIC
     Dosage: 1800 MILLIGRAM, BID, || DOSIS UNIDAD FRECUENCIA: 3600 MG?MILIGRAMOS || DOSIS POR TOMA: 1800 MG
     Route: 048
     Dates: start: 20140725, end: 20140808

REACTIONS (5)
  - Mucosal inflammation [Fatal]
  - Pancytopenia [Fatal]
  - Disseminated aspergillosis [Fatal]
  - Bronchopulmonary aspergillosis [Fatal]
  - Labelled drug-drug interaction medication error [Fatal]

NARRATIVE: CASE EVENT DATE: 201408
